FAERS Safety Report 5466480-8 (Version None)
Quarter: 2007Q3

REPORT INFORMATION
  Report Type: 
  Country: None (occurrence: None)
  Receive Date: 20070820
  Receipt Date: 20070606
  Transmission Date: 20080115
  Serious: No
  Sender: FDA-Public Use
  Company Number: WAES 0706USA01009

PATIENT
  Age: 88 Year
  Sex: Male

DRUGS (7)
  1. JANUVIA [Suspect]
     Indication: BLOOD GLUCOSE
     Dosage: 100 MG/ DAILY/ PO
     Route: 048
     Dates: start: 20070526
  2. AMARYL [Concomitant]
  3. CRESTOR [Concomitant]
  4. DIGITEK [Concomitant]
  5. TRICOR [Concomitant]
  6. IMIPRAMINE HYDROCHLORIDE [Concomitant]
  7. PROPRANOLOL HYDROCHLORIDE [Concomitant]

REACTIONS (1)
  - PROSTATIC HAEMORRHAGE [None]
